FAERS Safety Report 20208372 (Version 2)
Quarter: 2021Q4

REPORT INFORMATION
  Report Type: Spontaneous
  Country: US (occurrence: US)
  Receive Date: 20211220
  Receipt Date: 20211221
  Transmission Date: 20220303
  Serious: Yes (Hospitalization, Other)
  Sender: FDA-Public Use
  Company Number: US-BAYER-2021A270197

PATIENT
  Age: 71 Year
  Sex: Male
  Weight: 71.5 kg

DRUGS (8)
  1. ASPIRIN [Suspect]
     Active Substance: ASPIRIN
  2. AMLODIPINE [Concomitant]
     Active Substance: AMLODIPINE BESYLATE
  3. CYANOCOBALAMIN [Concomitant]
     Active Substance: CYANOCOBALAMIN
  4. LISINOPRIL [Concomitant]
     Active Substance: LISINOPRIL
  5. OMEPRAZOLE [Concomitant]
     Active Substance: OMEPRAZOLE
  6. PRAZOSIN [Concomitant]
     Active Substance: PRAZOSIN
  7. ROSUVASTATIN [Concomitant]
     Active Substance: ROSUVASTATIN
  8. MELOXICAM [Concomitant]
     Active Substance: MELOXICAM
     Indication: Back pain

REACTIONS (15)
  - Vitamin C deficiency [None]
  - Melaena [Recovered/Resolved]
  - Dizziness postural [Unknown]
  - Dyspnoea exertional [None]
  - Gingival bleeding [Unknown]
  - Weight decreased [Unknown]
  - Memory impairment [Unknown]
  - Spontaneous haematoma [Unknown]
  - Haemoglobin decreased [Unknown]
  - Post procedural haemorrhage [Unknown]
  - Bleeding time prolonged [Unknown]
  - Tooth loss [None]
  - Gingival ulceration [None]
  - Tooth disorder [None]
  - Purpura [None]

NARRATIVE: CASE EVENT DATE: 20190101
